FAERS Safety Report 26177947 (Version 1)
Quarter: 2025Q4

REPORT INFORMATION
  Report Type: Spontaneous
  Country: US (occurrence: US)
  Receive Date: 20251219
  Receipt Date: 20251219
  Transmission Date: 20260117
  Serious: Yes (Hospitalization, Other)
  Sender: ALEMBIC
  Company Number: US-ALEMBIC PHARMACUETICALS LIMITED-2025SCAL001786

PATIENT

DRUGS (2)
  1. LOSARTAN POTASSIUM [Suspect]
     Active Substance: LOSARTAN POTASSIUM
     Indication: Product used for unknown indication
     Dosage: 50 MILLIGRAM
     Route: 065
  2. LOSARTAN POTASSIUM [Suspect]
     Active Substance: LOSARTAN POTASSIUM
     Dosage: 75 MILLIGRAM
     Route: 065

REACTIONS (17)
  - Thrombotic thrombocytopenic purpura [Recovering/Resolving]
  - Facial paralysis [Recovering/Resolving]
  - Haptoglobin decreased [Recovering/Resolving]
  - Mental status changes [Recovering/Resolving]
  - Dysarthria [Recovering/Resolving]
  - Vision blurred [Recovering/Resolving]
  - Brain fog [Recovering/Resolving]
  - Ecchymosis [Recovering/Resolving]
  - Confusional state [Recovering/Resolving]
  - Jaundice [Recovering/Resolving]
  - Petechiae [Recovering/Resolving]
  - Fatigue [Recovering/Resolving]
  - Haemoglobin decreased [Recovering/Resolving]
  - Platelet count decreased [Recovering/Resolving]
  - Fibrin D dimer increased [Recovering/Resolving]
  - Blood lactate dehydrogenase increased [Recovering/Resolving]
  - Condition aggravated [Recovering/Resolving]
